FAERS Safety Report 6175046-6 (Version None)
Quarter: 2009Q2

REPORT INFORMATION
  Report Type: 
  Country: None (occurrence: None)
  Receive Date: 20090430
  Receipt Date: 20090422
  Transmission Date: 20091009
  Serious: Yes (Other)
  Sender: FDA-Public Use
  Company Number: US-GILEAD-2009-0021638

PATIENT
  Sex: Female

DRUGS (1)
  1. VIREAD [Suspect]

REACTIONS (5)
  - BONE PAIN [None]
  - HYPOCALCAEMIA [None]
  - MYALGIA [None]
  - OSTEOPOROSIS [None]
  - VITAMIN D DECREASED [None]
